FAERS Safety Report 4926584-2 (Version None)
Quarter: 2006Q1

REPORT INFORMATION
  Report Type: 
  Country: None (occurrence: None)
  Receive Date: 20060228
  Receipt Date: 20050506
  Transmission Date: 20060701
  Serious: No
  Sender: FDA-Public Use
  Company Number: US-GLAXOSMITHKLINE-A0557550A

PATIENT
  Sex: Male

DRUGS (3)
  1. LAMICTAL [Suspect]
     Indication: BIPOLAR DISORDER
     Dosage: 200MG PER DAY
     Route: 048
  2. PARNATE [Suspect]
     Indication: BIPOLAR DISORDER
     Dosage: 60MG UNKNOWN
     Route: 048
  3. ABILIFY [Concomitant]

REACTIONS (1)
  - BLOOD CREATININE INCREASED [None]
